FAERS Safety Report 8389545-X (Version None)
Quarter: 2012Q2

REPORT INFORMATION
  Report Type: 
  Country: None (occurrence: None)
  Receive Date: 20120528
  Receipt Date: 20120507
  Transmission Date: 20120825
  Serious: No
  Sender: FDA-Public Use
  Company Number: US-BAYER-2012-048086

PATIENT
  Age: 71 Year
  Sex: Male
  Weight: 107 kg

DRUGS (5)
  1. METOPROLOL [Concomitant]
  2. LISINOPRIL [Concomitant]
  3. CLONIDINE [Concomitant]
  4. AMLODIPINE BESYLATE [Concomitant]
  5. NAPROXEN SODIUM [Suspect]
     Indication: BACK PAIN
     Dosage: UNK
     Route: 048
     Dates: start: 20120101, end: 20120505

REACTIONS (1)
  - NO ADVERSE EVENT [None]
